FAERS Safety Report 6416582-4 (Version None)
Quarter: 2009Q4

REPORT INFORMATION
  Report Type: 
  Country: None (occurrence: None)
  Receive Date: 20091022
  Receipt Date: 20090828
  Transmission Date: 20100525
  Serious: Yes (Hospitalization)
  Sender: FDA-Public Use
  Company Number: WAES 0910USA01291

PATIENT
  Age: 69 Year
  Sex: Female

DRUGS (15)
  1. CAP VORINOSTAT UNK [Suspect]
     Indication: DIFFUSE LARGE B-CELL LYMPHOMA
     Dosage: /PO
     Route: 048
     Dates: start: 20090709
  2. ETOPOSIDE [Suspect]
     Indication: DIFFUSE LARGE B-CELL LYMPHOMA
     Dates: start: 20090709
  3. AMBIEN [Concomitant]
  4. IMODIUM [Concomitant]
  5. ALPRASOLAM [Concomitant]
  6. ASPIRIN [Concomitant]
  7. ATORVASTATIN [Concomitant]
  8. CIPROFLOXACIN [Concomitant]
  9. FUROSEMIDE [Concomitant]
  10. LACTULOSE [Concomitant]
  11. LANSOPRASOLE [Concomitant]
  12. METHOTREXATE [Concomitant]
  13. OXYCODONE [Concomitant]
  14. TELMISARTAN [Concomitant]
  15. VITAMIN D (UNSPECIFIED) [Concomitant]

REACTIONS (6)
  - DIARRHOEA [None]
  - FATIGUE [None]
  - HAEMOGLOBIN DECREASED [None]
  - LEUKOCYTURIA [None]
  - PYREXIA [None]
  - WHITE BLOOD CELL COUNT INCREASED [None]
